FAERS Safety Report 17673030 (Version 1)
Quarter: 2020Q2

REPORT INFORMATION
  Report Type: Spontaneous
  Country: SK (occurrence: SK)
  Receive Date: 20200416
  Receipt Date: 20200416
  Transmission Date: 20200713
  Serious: Yes (Hospitalization)
  Sender: FDA-Public Use
  Company Number: SK-CELLTRION INC.-2020SK021169

PATIENT

DRUGS (7)
  1. FLUDARABINE PHOSPHATE. [Suspect]
     Active Substance: FLUDARABINE PHOSPHATE
     Indication: CHRONIC LYMPHOCYTIC LEUKAEMIA STAGE 4
     Dosage: SECOND REGIMEN OF FCR
     Route: 065
     Dates: start: 20140319
  2. RITUXIMAB (UNKNOWN) [Suspect]
     Active Substance: RITUXIMAB
     Indication: PRODUCT USED FOR UNKNOWN INDICATION
     Dosage: FIRST REGIMEN OF FCR
     Route: 065
     Dates: start: 20140218
  3. FLUDARABINE PHOSPHATE. [Suspect]
     Active Substance: FLUDARABINE PHOSPHATE
     Indication: PRODUCT USED FOR UNKNOWN INDICATION
     Dosage: FIRST REGIMEN OF FCR
     Route: 065
     Dates: start: 20140218
  4. CYCLOPHOSPHAMIDE. [Suspect]
     Active Substance: CYCLOPHOSPHAMIDE
     Indication: PRODUCT USED FOR UNKNOWN INDICATION
     Dosage: FIRST DOSE OF FCR REGIMEN
     Route: 065
     Dates: start: 20140218
  5. RITUXIMAB (UNKNOWN) [Suspect]
     Active Substance: RITUXIMAB
     Indication: CHRONIC LYMPHOCYTIC LEUKAEMIA STAGE 4
     Dosage: SECOND REGIMEN OF FCR
     Route: 065
     Dates: start: 20140319
  6. CYCLOPHOSPHAMIDE. [Suspect]
     Active Substance: CYCLOPHOSPHAMIDE
     Dosage: THIRD REGIMEN
     Route: 065
     Dates: start: 201608
  7. CYCLOPHOSPHAMIDE. [Suspect]
     Active Substance: CYCLOPHOSPHAMIDE
     Indication: CHRONIC LYMPHOCYTIC LEUKAEMIA STAGE 4
     Dosage: SECOND DOSE OF FCR REGIMEN
     Route: 065
     Dates: start: 20140309

REACTIONS (7)
  - Interstitial lung disease [Recovering/Resolving]
  - Tachypnoea [Recovering/Resolving]
  - Dyspnoea [Recovering/Resolving]
  - Asthenia [Recovering/Resolving]
  - Pyrexia [Recovering/Resolving]
  - Cough [Recovering/Resolving]
  - Nausea [Recovering/Resolving]
